FAERS Safety Report 5655208-4 (Version None)
Quarter: 2008Q1

REPORT INFORMATION
  Report Type: 
  Country: None (occurrence: None)
  Receive Date: 20080307
  Receipt Date: 20080227
  Transmission Date: 20080703
  Serious: Yes (Other)
  Sender: FDA-Public Use
  Company Number: US-ROCHE-550053

PATIENT
  Age: 50 Year
  Sex: Male

DRUGS (2)
  1. PEG-INTERFERON A-2A (RO 25-8310) [Suspect]
     Dosage: FORM: PRE-FILLED SYRINGE
     Route: 065
     Dates: start: 20071001, end: 20080201
  2. RIBAVIRIN [Suspect]
     Dosage: FORM: PILLS
     Route: 065
     Dates: start: 20071001, end: 20080219

REACTIONS (1)
  - SPINAL FUSION SURGERY [None]
